FAERS Safety Report 12606428 (Version 3)
Quarter: 2016Q3

REPORT INFORMATION
  Report Type: Report from Study
  Country: GB (occurrence: GB)
  Receive Date: 20160729
  Receipt Date: 20160812
  Transmission Date: 20161109
  Serious: Yes (Hospitalization, Other)
  Sender: FDA-Public Use
  Company Number: GB-VIIV HEALTHCARE LIMITED-GB2016GSK095658

PATIENT
  Sex: Male
  Weight: 80 kg

DRUGS (1)
  1. NO THERAPY-VIIV [Suspect]
     Active Substance: UNSPECIFIED INGREDIENT
     Indication: HIV INFECTION

REACTIONS (1)
  - Biopsy liver [Unknown]

NARRATIVE: CASE EVENT DATE: 20160622
